FAERS Safety Report 6786851-7 (Version None)
Quarter: 2010Q2

REPORT INFORMATION
  Report Type: 
  Country: None (occurrence: None)
  Receive Date: 20100623
  Receipt Date: 20100611
  Transmission Date: 20101027
  Serious: Yes (Other)
  Sender: FDA-Public Use
  Company Number: US-JNJCH-2010010640

PATIENT
  Age: 9 Year
  Sex: Female

DRUGS (1)
  1. CHILDREN'S ZYRTEC ALLERGY [Suspect]
     Indication: HYPERSENSITIVITY
     Dosage: TEXT:ONE TABLET ONCE A DAY OR EVERY OTHER DAY
     Route: 048

REACTIONS (3)
  - FALL [None]
  - SKIN LACERATION [None]
  - SOMNOLENCE [None]
